FAERS Safety Report 8569173-3 (Version None)
Quarter: 2012Q3

REPORT INFORMATION
  Report Type: 
  Country: None (occurrence: None)
  Receive Date: 20120803
  Receipt Date: 20120620
  Transmission Date: 20120928
  Serious: No
  Sender: FDA-Public Use
  Company Number: US-ABBOTT-12P-163-0946489-00

PATIENT
  Sex: Male

DRUGS (1)
  1. NIASPAN [Suspect]
     Indication: PRODUCT USED FOR UNKNOWN INDICATION
     Dates: start: 20120301, end: 20120301

REACTIONS (4)
  - SKIN BURNING SENSATION [None]
  - ERYTHEMA [None]
  - MIDDLE INSOMNIA [None]
  - FLUSHING [None]
